FAERS Safety Report 21390777 (Version 1)
Quarter: 2022Q3

REPORT INFORMATION
  Report Type: Spontaneous
  Country: US (occurrence: None)
  Receive Date: 20220928
  Receipt Date: 20220928
  Transmission Date: 20221026
  Serious: Yes (Death)
  Sender: FDA-Public Use
  Company Number: None

PATIENT
  Sex: Male
  Weight: 17.6 kg

DRUGS (6)
  1. CYTARABINE [Suspect]
     Active Substance: CYTARABINE
  2. DAUNORUBICIN [Concomitant]
     Active Substance: DAUNORUBICIN
  3. DEXAMETHASONE [Concomitant]
     Active Substance: DEXAMETHASONE
  4. METHOTREXATE [Concomitant]
     Active Substance: METHOTREXATE
  5. ONCASPAR [Concomitant]
     Active Substance: PEGASPARGASE
  6. VINCRISTINE SULFATE [Concomitant]
     Active Substance: VINCRISTINE SULFATE

REACTIONS (6)
  - Multiple organ dysfunction syndrome [None]
  - Oxygen saturation decreased [None]
  - Physical deconditioning [None]
  - Hypotension [None]
  - Systemic candida [None]
  - Sepsis [None]

NARRATIVE: CASE EVENT DATE: 20220718
